FAERS Safety Report 13141318 (Version 1)
Quarter: 2017Q1

REPORT INFORMATION
  Report Type: Spontaneous
  Country: HR (occurrence: HR)
  Receive Date: 20170123
  Receipt Date: 20170123
  Transmission Date: 20170428
  Serious: Yes (Hospitalization, Other)
  Sender: FDA-Public Use
  Company Number: HR-JNJFOC-20170119179

PATIENT
  Sex: Female

DRUGS (1)
  1. HALDOL [Suspect]
     Active Substance: HALOPERIDOL
     Indication: DEPRESSION
     Dosage: EVERY 2-3 HOURS
     Route: 048
     Dates: start: 20161006, end: 20161007

REACTIONS (7)
  - Rhabdomyolysis [Unknown]
  - Loss of consciousness [Unknown]
  - Off label use [Unknown]
  - Product use issue [Unknown]
  - Neuroleptic malignant syndrome [Unknown]
  - Somnolence [Unknown]
  - Leukocytosis [Unknown]

NARRATIVE: CASE EVENT DATE: 20161006
